FAERS Safety Report 9200731 (Version 1)
Quarter: 2013Q2

REPORT INFORMATION
  Report Type: Report from Study
  Country: US (occurrence: US)
  Receive Date: 20130401
  Receipt Date: 20130401
  Transmission Date: 20140414
  Serious: Yes (Hospitalization)
  Sender: FDA-Public Use
  Company Number: US-BIOGENIDEC-2012BI016105

PATIENT
  Age: 60 Year
  Sex: Male

DRUGS (21)
  1. TYSABRI [Suspect]
     Indication: MULTIPLE SCLEROSIS
     Route: 042
     Dates: start: 20080826, end: 20120220
  2. TYSABRI [Suspect]
     Indication: MULTIPLE SCLEROSIS
     Route: 042
     Dates: start: 20120625
  3. ASPIRIN [Concomitant]
     Route: 048
  4. CARDIZEM CD [Concomitant]
     Route: 048
  5. APRESOLINE [Concomitant]
     Route: 048
  6. MAXZIDE [Concomitant]
     Route: 048
  7. CRESTOR [Concomitant]
     Route: 048
  8. PEPCID [Concomitant]
     Route: 048
  9. BACLOFEN [Concomitant]
     Route: 048
  10. BUTALBITAL [Concomitant]
     Route: 048
  11. AMPYRA [Concomitant]
     Route: 048
  12. FLOMAX [Concomitant]
     Route: 048
  13. PROTONIX [Concomitant]
     Route: 048
  14. KLONOPIN [Concomitant]
     Route: 048
  15. CLARITIN [Concomitant]
     Route: 048
  16. BENADRYL [Concomitant]
     Route: 048
  17. OXYCONTIN [Concomitant]
     Route: 048
  18. ROXICODONE [Concomitant]
     Route: 048
  19. PHENERGAN [Concomitant]
     Route: 048
  20. SENOKOT [Concomitant]
     Route: 048
  21. COUMADIN [Concomitant]

REACTIONS (1)
  - Osteoarthritis [Recovered/Resolved]
